FAERS Safety Report 12282971 (Version 1)
Quarter: 2016Q2

REPORT INFORMATION
  Report Type: Spontaneous
  Country: GB (occurrence: GB)
  Receive Date: 20160419
  Receipt Date: 20160419
  Transmission Date: 20160815
  Serious: Yes (Other)
  Sender: FDA-Public Use
  Company Number: GB-PFIZER INC-2016212854

PATIENT
  Age: 60 Year
  Sex: Male
  Weight: 123 kg

DRUGS (12)
  1. OMEPRAZOLE. [Concomitant]
     Active Substance: OMEPRAZOLE
     Indication: PROPHYLAXIS
     Dosage: 2 DF, UNK (TO PROTECT STOMACH FROM ASPIRIN AND DIC...)
     Dates: start: 20150506
  2. ALLOPURINOL. [Concomitant]
     Active Substance: ALLOPURINOL
     Dosage: 2 DF, 1X/DAY (IN THE MORNING)
     Dates: start: 20150506
  3. METOPROLOL TARTRATE. [Concomitant]
     Active Substance: METOPROLOL TARTRATE
     Dosage: 0.5 DF, 2X/DAY
     Dates: start: 20150506
  4. ALPHOSYL /00325301/ [Concomitant]
     Dosage: 1 DF, 3X/DAY
     Dates: start: 20150506
  5. NAPROXEN. [Concomitant]
     Active Substance: NAPROXEN
     Dosage: 1 DF, 2X/DAY
     Dates: start: 20150506
  6. BYDUREON [Concomitant]
     Active Substance: EXENATIDE
     Dosage: 1 DF, WEEKLY
     Dates: start: 20160318
  7. ASPIRIN. [Concomitant]
     Active Substance: ASPIRIN
     Dosage: 1 DF, 1X/DAY
     Dates: start: 20150506
  8. LOSARTAN. [Concomitant]
     Active Substance: LOSARTAN
     Dosage: 1 DF, 1X/DAY
     Dates: start: 20150506
  9. NIZORAL [Concomitant]
     Active Substance: KETOCONAZOLE
     Dosage: 1 DF, 2X/DAY
     Dates: start: 20150506
  10. HUMULIN I [Concomitant]
     Active Substance: INSULIN HUMAN
     Dosage: USE AS DIRECTED
     Dates: start: 20151113
  11. AMLODIPINE BESILATE [Suspect]
     Active Substance: AMLODIPINE BESYLATE
     Dosage: UNK
     Dates: start: 20160322
  12. ATORVASTATIN [Concomitant]
     Active Substance: ATORVASTATIN
     Dosage: 1 DF, 1X/DAY
     Dates: start: 20150506

REACTIONS (3)
  - Dyspnoea [Recovered/Resolved]
  - Swelling face [Recovered/Resolved]
  - Chest discomfort [Recovered/Resolved]
